FAERS Safety Report 23190734 (Version 1)
Quarter: 2023Q4

REPORT INFORMATION
  Report Type: Spontaneous
  Country: US (occurrence: US)
  Receive Date: 20231116
  Receipt Date: 20231116
  Transmission Date: 20240110
  Serious: Yes (Hospitalization)
  Sender: FDA-Public Use
  Company Number: US-ALLERGAN-2224926US

PATIENT
  Sex: Male

DRUGS (1)
  1. LEXAPRO [Suspect]
     Active Substance: ESCITALOPRAM OXALATE
     Indication: Depression
     Dosage: DOSE DESC: UNK
     Route: 048

REACTIONS (7)
  - Hospitalisation [Unknown]
  - Drug ineffective [Unknown]
  - Illness [Unknown]
  - Drug metabolising enzyme decreased [Unknown]
  - Sexual dysfunction [Unknown]
  - Nausea [Unknown]
  - Therapeutic product effect decreased [Unknown]

NARRATIVE: CASE EVENT DATE: 20100101
